FAERS Safety Report 6079222-2 (Version None)
Quarter: 2009Q1

REPORT INFORMATION
  Report Type: 
  Country: None (occurrence: None)
  Receive Date: 20090216
  Receipt Date: 20090206
  Transmission Date: 20090719
  Serious: Yes (Other)
  Sender: FDA-Public Use
  Company Number: ES-ABBOTT-09P-144-0502411-00

PATIENT
  Age: 50 Year
  Sex: Male

DRUGS (5)
  1. NORVIR [Suspect]
     Indication: DRUG USE FOR UNKNOWN INDICATION
  2. REYATAZ [Suspect]
     Indication: DRUG USE FOR UNKNOWN INDICATION
  3. EPIVIR [Suspect]
     Indication: DRUG USE FOR UNKNOWN INDICATION
  4. RETROVIR [Suspect]
     Indication: DRUG USE FOR UNKNOWN INDICATION
  5. LOPID [Suspect]
     Indication: DRUG USE FOR UNKNOWN INDICATION

REACTIONS (1)
  - MUSCLE INJURY [None]
